FAERS Safety Report 9419475 (Version 2)
Quarter: 2013Q3

REPORT INFORMATION
  Report Type: Report from Study
  Country: US (occurrence: US)
  Receive Date: 20130725
  Receipt Date: 20130726
  Transmission Date: 20140515
  Serious: Yes (Hospitalization)
  Sender: FDA-Public Use
  Company Number: US-ABBOTT-13P-163-1122280-00

PATIENT
  Age: 58 Year
  Sex: Male
  Weight: 66.74 kg

DRUGS (8)
  1. HUMIRA [Suspect]
     Indication: RHEUMATOID ARTHRITIS
     Route: 058
     Dates: start: 2011
  2. LISINOPRIL [Concomitant]
     Indication: PRODUCT USED FOR UNKNOWN INDICATION
  3. HYDROCHLORTHIAZIDE [Concomitant]
     Indication: PRODUCT USED FOR UNKNOWN INDICATION
  4. METHOTREXATE [Concomitant]
     Indication: RHEUMATOID ARTHRITIS
  5. AMLODIPINE [Concomitant]
     Indication: PRODUCT USED FOR UNKNOWN INDICATION
  6. JANUVIA [Concomitant]
     Indication: TYPE 2 DIABETES MELLITUS
  7. FOLIC ACID [Concomitant]
     Indication: VITAMIN SUPPLEMENTATION
  8. SPIRONOLACTONE [Concomitant]
     Indication: CARDIAC DISORDER

REACTIONS (5)
  - Chest discomfort [Not Recovered/Not Resolved]
  - Myocardial infarction [Recovering/Resolving]
  - Chest pain [Recovered/Resolved]
  - Ejection fraction decreased [Not Recovered/Not Resolved]
  - Cardiomyopathy [Not Recovered/Not Resolved]
